FAERS Safety Report 18757430 (Version 3)
Quarter: 2021Q3

REPORT INFORMATION
  Report Type: Spontaneous
  Country: US (occurrence: US)
  Receive Date: 20210119
  Receipt Date: 20210729
  Transmission Date: 20211014
  Serious: Yes (Life-Threatening, Hospitalization, Other)
  Sender: FDA-Public Use
  Company Number: US-LUPIN PHARMACEUTICALS INC.-2021-00282

PATIENT
  Age: 28 Year
  Sex: Female

DRUGS (4)
  1. NAPROXEN. [Suspect]
     Active Substance: NAPROXEN
     Indication: PRODUCT USED FOR UNKNOWN INDICATION
     Dosage: UNK
     Route: 048
  2. BENZATROPINE [Suspect]
     Active Substance: BENZTROPINE
     Indication: PRODUCT USED FOR UNKNOWN INDICATION
     Dosage: UNK
     Route: 048
  3. QUETIAPINE FUMARATE. [Suspect]
     Active Substance: QUETIAPINE FUMARATE
     Indication: PRODUCT USED FOR UNKNOWN INDICATION
     Dosage: UNK
     Route: 048
  4. LAMOTRIGINE. [Suspect]
     Active Substance: LAMOTRIGINE
     Indication: PRODUCT USED FOR UNKNOWN INDICATION
     Dosage: UNK
     Route: 048

REACTIONS (8)
  - Coma [Recovered/Resolved]
  - Toxicity to various agents [Recovered/Resolved]
  - Agitation [Recovered/Resolved]
  - Clonus [Recovered/Resolved]
  - Intentional overdose [Unknown]
  - Muscle rigidity [Recovered/Resolved]
  - Hyperreflexia [Recovered/Resolved]
  - Neurotoxicity [Unknown]
